FAERS Safety Report 9958332 (Version 2)
Quarter: 2014Q1

REPORT INFORMATION
  Report Type: Spontaneous
  Country: BR (occurrence: BR)
  Receive Date: 20140304
  Receipt Date: 20140312
  Transmission Date: 20141002
  Serious: Yes (Other)
  Sender: FDA-Public Use
  Company Number: BR-AMGEN-BRASP2014014910

PATIENT
  Age: 71 Year
  Sex: Female
  Weight: 66 kg

DRUGS (8)
  1. ENBREL [Suspect]
     Indication: RHEUMATOID ARTHRITIS
     Dosage: 50 MG, QWK
     Route: 058
  2. ARAVA [Concomitant]
     Dosage: UNK
  3. METICORTEN [Concomitant]
     Dosage: UNK
  4. METHOTREXAT                        /00113801/ [Concomitant]
     Dosage: UNK
  5. CIMELIDE [Concomitant]
     Dosage: UNK
  6. FOLIC ACID [Concomitant]
     Dosage: UNK
  7. OSTEONUTRI [Concomitant]
     Dosage: UNK
  8. ALENDIL [Concomitant]
     Dosage: UNK

REACTIONS (2)
  - Carcinoembryonic antigen increased [Unknown]
  - Pain [Unknown]
